FAERS Safety Report 4747201-0 (Version None)
Quarter: 2005Q3

REPORT INFORMATION
  Report Type: 
  Country: None (occurrence: None)
  Receive Date: 20050815
  Receipt Date: 20050802
  Transmission Date: 20060218
  Serious: Yes (Death, Hospitalization)
  Sender: FDA-Public Use
  Company Number: 2005082012

PATIENT
  Age: 95 Year
  Sex: Male

DRUGS (1)
  1. IRINOTECAN HYDROCHLORIDE SOLUTION, STERILE (ININOTECAN HYDROCHLORIDE) [Suspect]
     Indication: COLORECTAL CANCER METASTATIC
     Dosage: 300 MG/M2 (300 MG/M2, CYCLIC), INTRAVENOUS
     Route: 042
     Dates: start: 20050512, end: 20050512

REACTIONS (19)
  - ANOREXIA [None]
  - BACTERIA BLOOD IDENTIFIED [None]
  - BLOOD UREA INCREASED [None]
  - COLORECTAL CANCER METASTATIC [None]
  - CONDITION AGGRAVATED [None]
  - DEHYDRATION [None]
  - DIABETES MELLITUS NON-INSULIN-DEPENDENT [None]
  - DIARRHOEA [None]
  - DYSPHAGIA [None]
  - FANCONI SYNDROME ACQUIRED [None]
  - FATIGUE [None]
  - MALIGNANT NEOPLASM PROGRESSION [None]
  - METABOLIC ACIDOSIS [None]
  - NEPHROPATHY TOXIC [None]
  - NEUTROPENIA [None]
  - ORAL INTAKE REDUCED [None]
  - RENAL TUBULAR ACIDOSIS [None]
  - STREPTOCOCCAL INFECTION [None]
  - THERAPY NON-RESPONDER [None]
